FAERS Safety Report 9378021 (Version 2)
Quarter: 2013Q4

REPORT INFORMATION
  Report Type: Spontaneous
  Country: US (occurrence: US)
  Receive Date: 20130701
  Receipt Date: 20131212
  Transmission Date: 20140711
  Serious: Yes (Death, Hospitalization)
  Sender: FDA-Public Use
  Company Number: US-B.I. PHARMACEUTICALS,INC./RIDGEFIELD-2013-BI-18732BP

PATIENT
  Sex: Female
  Weight: 43.09 kg

DRUGS (15)
  1. PRADAXA [Suspect]
     Indication: ANTICOAGULANT THERAPY
     Dosage: 300 MG
     Dates: start: 20111207, end: 20120322
  2. PRADAXA [Suspect]
     Indication: ATRIAL FIBRILLATION
  3. ASPIRIN [Concomitant]
  4. ZOCOR [Concomitant]
  5. CALCIUM WITH VITAMIN D [Concomitant]
  6. CARDIZEM LA [Concomitant]
  7. FOLGARD [Concomitant]
  8. AVAPRO [Concomitant]
  9. MULTIVITAMIN [Concomitant]
  10. PRESERVISION [Concomitant]
  11. FISH OIL [Concomitant]
  12. METOPROLOL [Concomitant]
  13. LASIX [Concomitant]
  14. POTASSIUM CHLORIDE [Concomitant]
  15. COLACE [Concomitant]

REACTIONS (6)
  - Gastrointestinal haemorrhage [Fatal]
  - Septic shock [Unknown]
  - Hypovolaemic shock [Unknown]
  - Coagulopathy [Unknown]
  - Anaemia [Unknown]
  - Renal failure acute [Unknown]
